FAERS Safety Report 6875950-7 (Version None)
Quarter: 2010Q3

REPORT INFORMATION
  Report Type: 
  Country: None (occurrence: None)
  Receive Date: 20100727
  Receipt Date: 20100717
  Transmission Date: 20110219
  Serious: Yes (Hospitalization, Other)
  Sender: FDA-Public Use
  Company Number: US-BAYER-201033723GPV

PATIENT
  Age: 53 Year
  Sex: Male

DRUGS (2)
  1. FLUDARABINE PHOSPHATE [Suspect]
     Indication: CHRONIC LYMPHOCYTIC LEUKAEMIA
     Dosage: FOURTH CYCLE
  2. RITUXIMAB [Suspect]
     Indication: CHRONIC LYMPHOCYTIC LEUKAEMIA
     Dosage: FOURTH CYCLE

REACTIONS (16)
  - ANAEMIA [None]
  - BACK PAIN [None]
  - CHILLS [None]
  - CHYLOTHORAX [None]
  - COUGH [None]
  - DECREASED APPETITE [None]
  - FATIGUE [None]
  - HEPATIC ENZYME INCREASED [None]
  - HILAR LYMPHADENOPATHY [None]
  - IMMUNOGLOBULINS DECREASED [None]
  - LEUKOPENIA [None]
  - NIGHT SWEATS [None]
  - PLEURAL EFFUSION [None]
  - PNEUMONIA LEGIONELLA [None]
  - PYREXIA [None]
  - RESPIRATORY DISORDER [None]
